FAERS Safety Report 15073441 (Version 1)
Quarter: 2018Q2

REPORT INFORMATION
  Report Type: Spontaneous
  Country: US (occurrence: US)
  Receive Date: 20180627
  Receipt Date: 20180627
  Transmission Date: 20180711
  Serious: No
  Sender: FDA-Public Use
  Company Number: US-PFIZER INC-2018256755

PATIENT
  Age: 63 Year
  Sex: Female

DRUGS (3)
  1. METHOTREXATE SODIUM. [Concomitant]
     Active Substance: METHOTREXATE SODIUM
     Indication: ARTHRALGIA
     Dosage: 25MG/ML, UNK
  2. XELJANZ XR [Suspect]
     Active Substance: TOFACITINIB CITRATE
     Indication: ARTHRALGIA
     Dosage: 11 MG, ALTERNATE DAY (EVERY OTHER DAY)
  3. METHOTREXATE SODIUM. [Concomitant]
     Active Substance: METHOTREXATE SODIUM
     Dosage: 0.5 ML, WEEKLY (ONCE A WEEK)

REACTIONS (2)
  - Product use issue [Unknown]
  - Limb discomfort [Unknown]
